FAERS Safety Report 23935082 (Version 1)
Quarter: 2024Q2

REPORT INFORMATION
  Report Type: Spontaneous
  Country: US (occurrence: US)
  Receive Date: 20240604
  Receipt Date: 20240604
  Transmission Date: 20240716
  Serious: No
  Sender: FDA-Public Use
  Company Number: US-SUN PHARMACEUTICAL INDUSTRIES LTD-2023R1-404396

PATIENT
  Sex: Male

DRUGS (3)
  1. BROMSITE [Suspect]
     Active Substance: BROMFENAC SODIUM
     Indication: Product used for unknown indication
     Dosage: FIST DOSE
     Route: 047
     Dates: start: 20230731
  2. BROMSITE [Suspect]
     Active Substance: BROMFENAC SODIUM
     Dosage: SECOND DOSE
     Route: 047
  3. BROMSITE [Suspect]
     Active Substance: BROMFENAC SODIUM
     Dosage: THIRD DOSE (TAKEN ON WEDNESDAY EVENING)
     Route: 047
     Dates: start: 2023

REACTIONS (4)
  - Eye pain [Recovering/Resolving]
  - Eye irritation [Recovering/Resolving]
  - Product packaging quantity issue [Unknown]
  - Product dose omission issue [Unknown]
